FAERS Safety Report 7128848 (Version 6)
Quarter: 2014Q2

REPORT INFORMATION
  Report Type: Spontaneous
  Country: US (occurrence: US)
  Receive Date: 20090924
  Receipt Date: 20140611
  Transmission Date: 20141212
  Serious: Yes (Other)
  Sender: FDA-Public Use
  Company Number: US-ASTRAZENECA-2009UW16761

PATIENT
  Age: 47 Year
  Sex: Female
  Weight: 81.2 kg

DRUGS (30)
  1. SEROQUEL [Suspect]
     Indication: DEPRESSION
     Route: 048
     Dates: start: 2005
  2. SEROQUEL [Suspect]
     Indication: MOOD SWINGS
     Route: 048
     Dates: start: 2005
  3. SEROQUEL [Suspect]
     Indication: IRRITABILITY
     Route: 048
     Dates: start: 2005
  4. SEROQUEL [Suspect]
     Indication: TACHYPHRENIA
     Route: 048
     Dates: start: 2005
  5. SEROQUEL [Suspect]
     Indication: BIPOLAR DISORDER
     Route: 048
     Dates: start: 2005
  6. SEROQUEL [Suspect]
     Indication: SLEEP DISORDER
     Route: 048
     Dates: start: 2005
  7. SEROQUEL [Suspect]
     Indication: BIPOLAR I DISORDER
     Route: 048
     Dates: start: 2005
  8. SEROQUEL [Suspect]
     Indication: DEPRESSION
     Route: 048
     Dates: end: 201401
  9. SEROQUEL [Suspect]
     Indication: MOOD SWINGS
     Route: 048
     Dates: end: 201401
  10. SEROQUEL [Suspect]
     Indication: IRRITABILITY
     Route: 048
     Dates: end: 201401
  11. SEROQUEL [Suspect]
     Indication: TACHYPHRENIA
     Route: 048
     Dates: end: 201401
  12. SEROQUEL [Suspect]
     Indication: BIPOLAR DISORDER
     Route: 048
     Dates: end: 201401
  13. SEROQUEL [Suspect]
     Indication: SLEEP DISORDER
     Route: 048
     Dates: end: 201401
  14. SEROQUEL [Suspect]
     Indication: BIPOLAR I DISORDER
     Route: 048
     Dates: end: 201401
  15. SEROQUEL [Suspect]
     Indication: DEPRESSION
     Route: 048
  16. SEROQUEL [Suspect]
     Indication: MOOD SWINGS
     Route: 048
  17. SEROQUEL [Suspect]
     Indication: IRRITABILITY
     Route: 048
  18. SEROQUEL [Suspect]
     Indication: TACHYPHRENIA
     Route: 048
  19. SEROQUEL [Suspect]
     Indication: BIPOLAR DISORDER
     Route: 048
  20. SEROQUEL [Suspect]
     Indication: SLEEP DISORDER
     Route: 048
  21. SEROQUEL [Suspect]
     Indication: BIPOLAR I DISORDER
     Route: 048
  22. SEROQUEL [Suspect]
     Indication: DEPRESSION
     Route: 048
  23. SEROQUEL [Suspect]
     Indication: MOOD SWINGS
     Route: 048
  24. SEROQUEL [Suspect]
     Indication: IRRITABILITY
     Route: 048
  25. SEROQUEL [Suspect]
     Indication: TACHYPHRENIA
     Route: 048
  26. SEROQUEL [Suspect]
     Indication: BIPOLAR DISORDER
     Route: 048
  27. SEROQUEL [Suspect]
     Indication: SLEEP DISORDER
     Route: 048
  28. SEROQUEL [Suspect]
     Indication: BIPOLAR I DISORDER
     Route: 048
  29. TRAZADONE [Suspect]
     Route: 065
     Dates: start: 20140318
  30. METFORMIN [Concomitant]
     Indication: DIABETES MELLITUS
     Dates: start: 2013

REACTIONS (37)
  - Diabetes mellitus [Not Recovered/Not Resolved]
  - Violence-related symptom [Unknown]
  - Syncope [Unknown]
  - Gastrointestinal hypomotility [Unknown]
  - Therapeutic response changed [Unknown]
  - Non-alcoholic steatohepatitis [Unknown]
  - Influenza like illness [Unknown]
  - Pain in extremity [Unknown]
  - Diarrhoea [Unknown]
  - Headache [Unknown]
  - Insomnia [Unknown]
  - Nausea [Unknown]
  - Back pain [Unknown]
  - Activities of daily living impaired [Unknown]
  - Dehydration [Unknown]
  - Disturbance in attention [Unknown]
  - Hyperhidrosis [Unknown]
  - Feeling jittery [Unknown]
  - Depressed mood [Unknown]
  - Thinking abnormal [Unknown]
  - Decreased appetite [Unknown]
  - Tachyphrenia [Unknown]
  - Confusional state [Unknown]
  - Frustration [Unknown]
  - Faeces discoloured [Unknown]
  - Weight decreased [Unknown]
  - Glaucoma [Unknown]
  - Dizziness [Unknown]
  - Dry mouth [Unknown]
  - Tremor [Unknown]
  - Dyspnoea [Unknown]
  - Irritability [Unknown]
  - Asthenia [Unknown]
  - Withdrawal syndrome [Unknown]
  - Vomiting [Unknown]
  - Intentional product misuse [Unknown]
  - Drug ineffective [Unknown]
